FAERS Safety Report 8244330-4 (Version None)
Quarter: 2012Q1

REPORT INFORMATION
  Report Type: 
  Country: None (occurrence: None)
  Receive Date: 20120329
  Receipt Date: 20120320
  Transmission Date: 20120608
  Serious: Yes (Hospitalization)
  Sender: FDA-Public Use
  Company Number: GR-JNJFOC-20120309846

PATIENT
  Age: 66 Year
  Sex: Male
  Weight: 123.9 kg

DRUGS (1)
  1. REMICADE [Suspect]
     Indication: PSORIASIS
     Dosage: HAD 14 INFUSIONS
     Route: 042
     Dates: start: 20100119, end: 20111104

REACTIONS (1)
  - PROSTATITIS [None]
